FAERS Safety Report 8624491-5 (Version None)
Quarter: 2012Q3

REPORT INFORMATION
  Report Type: 
  Country: None (occurrence: None)
  Receive Date: 20120810
  Receipt Date: 20120730
  Transmission Date: 20120928
  Serious: Yes (Other)
  Sender: FDA-Public Use
  Company Number: 2012P1052334

PATIENT

DRUGS (2)
  1. MELOXICAM [Suspect]
     Dosage: 10 MG, QD
  2. OMEPRAZOLE [Concomitant]

REACTIONS (2)
  - GASTROINTESTINAL EROSION [None]
  - ILEAL ULCER [None]
